FAERS Safety Report 6178094-5 (Version None)
Quarter: 2009Q2

REPORT INFORMATION
  Report Type: 
  Country: None (occurrence: None)
  Receive Date: 20090430
  Receipt Date: 20090420
  Transmission Date: 20091009
  Serious: Yes (Other)
  Sender: FDA-Public Use
  Company Number: ADE2009-0582

PATIENT
  Age: 68 Year
  Sex: Male

DRUGS (10)
  1. BISOPROLOL [Suspect]
     Dosage: 7.5MG,
  2. ACIPIMOX [Suspect]
     Dosage: 250MG, BID,
  3. AMIODARONE [Suspect]
     Dosage: 200MG
  4. ASPIRIN [Suspect]
     Dosage: 75MG
  5. DIGOXIN [Suspect]
     Dosage: 0.125MG
  6. EZETIMIBE [Suspect]
     Dosage: 10MG - QD - ORAL
     Route: 048
  7. FUROSEMIDE [Suspect]
     Dosage: 120MG- BID
  8. LANSOPRAZOLE [Suspect]
     Dosage: 30MG- QD
  9. FUROSEMIDE [Suspect]
     Dosage: 80MG- BID
  10. PERINDOPRIL [Suspect]
     Dosage: 2MG

REACTIONS (11)
  - ATRIAL FIBRILLATION [None]
  - CARDIAC MURMUR [None]
  - DIZZINESS [None]
  - DYSPNOEA [None]
  - FATIGUE [None]
  - FEELING ABNORMAL [None]
  - LEFT VENTRICULAR DYSFUNCTION [None]
  - OEDEMA [None]
  - PARAESTHESIA [None]
  - VENOUS PRESSURE JUGULAR INCREASED [None]
  - VENTRICULAR TACHYCARDIA [None]
